FAERS Safety Report 24540018 (Version 1)
Quarter: 2024Q4

REPORT INFORMATION
  Report Type: Spontaneous
  Country: US (occurrence: None)
  Receive Date: 20241023
  Receipt Date: 20241023
  Transmission Date: 20250115
  Serious: Yes (Hospitalization)
  Sender: Public
  Company Number: None

PATIENT
  Sex: Female

DRUGS (2)
  1. IBRANCE [Suspect]
     Active Substance: PALBOCICLIB
     Indication: Breast cancer female
     Dosage: OTHER FREQUENCY : DAILY 21/28 DAYS;?
     Route: 048
     Dates: start: 201705
  2. LETROZOLE [Suspect]
     Active Substance: LETROZOLE

REACTIONS (3)
  - COVID-19 [None]
  - Immune system disorder [None]
  - Therapy interrupted [None]
